FAERS Safety Report 6432956-X (Version None)
Quarter: 2009Q4

REPORT INFORMATION
  Report Type: 
  Country: None (occurrence: None)
  Receive Date: 20091105
  Receipt Date: 20091027
  Transmission Date: 20100525
  Serious: Yes (Death)
  Sender: FDA-Public Use
  Company Number: A-CH2009-25488

PATIENT
  Age: 74 Year
  Sex: Male
  Weight: 107 kg

DRUGS (12)
  1. TRACLEER [Suspect]
     Indication: PULMONARY ARTERIAL HYPERTENSION
     Dosage: 125 MG, BID, ORAL , 62.5 MG, BID, ORAL
     Route: 048
     Dates: start: 20090401, end: 20090430
  2. TRACLEER [Suspect]
     Indication: PULMONARY ARTERIAL HYPERTENSION
     Dosage: 125 MG, BID, ORAL , 62.5 MG, BID, ORAL
     Route: 048
     Dates: start: 20090501, end: 20090519
  3. ACENOCOUMAROL (ACENOCOUMAROL) [Concomitant]
  4. PLAVIX [Concomitant]
  5. BUMETANIDE [Concomitant]
  6. SERETIDE (FLUTICASONE PROPIONATE, SALMETEROL XINAFOATE) [Concomitant]
  7. ALDACTONE [Concomitant]
  8. SPIRIVA [Concomitant]
  9. EMCOR (BISOPROLOL FUMARATE) [Concomitant]
  10. LIPITOR [Concomitant]
  11. INSULIN (INSULIN) [Concomitant]
  12. SALBUTAMOL (SALBUTAMOL) [Concomitant]

REACTIONS (5)
  - ACUTE CORONARY SYNDROME [None]
  - DYSPNOEA [None]
  - OXYGEN SATURATION DECREASED [None]
  - RESUSCITATION [None]
  - TACHYCARDIA [None]
